FAERS Safety Report 9670497 (Version 11)
Quarter: 2017Q1

REPORT INFORMATION
  Report Type: Report from Study
  Country: CA (occurrence: CA)
  Receive Date: 20131106
  Receipt Date: 20170317
  Transmission Date: 20170429
  Serious: Yes (Other)
  Sender: FDA-Public Use
  Company Number: CA-ROCHE-1112304

PATIENT
  Age: 71 Year
  Sex: Female
  Weight: 36.4 kg

DRUGS (16)
  1. LANSOPRAZOLE. [Concomitant]
     Active Substance: LANSOPRAZOLE
     Indication: PROPHYLAXIS AGAINST GASTROINTESTINAL ULCER
  2. SPIRIVA [Concomitant]
     Active Substance: TIOTROPIUM BROMIDE MONOHYDRATE
     Indication: CHRONIC OBSTRUCTIVE PULMONARY DISEASE
  3. NAPROXEN. [Concomitant]
     Active Substance: NAPROXEN
  4. ONBREZ [Suspect]
     Active Substance: INDACATEROL
     Indication: PRODUCT USED FOR UNKNOWN INDICATION
     Route: 065
  5. ACETAMINOPHEN. [Concomitant]
     Active Substance: ACETAMINOPHEN
     Indication: PREMEDICATION
     Route: 048
     Dates: start: 20110413
  6. METHYLPREDNISOLONE. [Concomitant]
     Active Substance: METHYLPREDNISOLONE
     Indication: PREMEDICATION
     Route: 042
     Dates: start: 20091002
  7. SOLU-MEDROL [Concomitant]
     Active Substance: METHYLPREDNISOLONE SODIUM SUCCINATE
     Route: 042
  8. RITUXAN [Suspect]
     Active Substance: RITUXIMAB
     Indication: RHEUMATOID ARTHRITIS
     Dosage: RECEIVED RITUXIMAB INFUSION ON 18/DEC/2013, 23/SEP/2014, 07/OCT/2014, 16/JUN/2015 AND 30/JUN/2015
     Route: 042
     Dates: start: 20091002
  9. TRAMADOL. [Concomitant]
     Active Substance: TRAMADOL
     Dosage: PRN
     Route: 065
  10. SELENIUM [Concomitant]
     Active Substance: SELENIUM
  11. VITAMIN E [Concomitant]
     Active Substance: .ALPHA.-TOCOPHEROL
  12. SEREVENT DISKUS [Concomitant]
     Active Substance: SALMETEROL XINAFOATE
     Indication: CHRONIC OBSTRUCTIVE PULMONARY DISEASE
  13. REACTINE (CANADA) [Suspect]
     Active Substance: CETIRIZINE HYDROCHLORIDE
     Indication: PRODUCT USED FOR UNKNOWN INDICATION
     Route: 065
  14. FLAX [Concomitant]
  15. DIPHENHYDRAMINE HCL [Concomitant]
     Active Substance: DIPHENHYDRAMINE HYDROCHLORIDE
     Indication: PREMEDICATION
     Route: 048
     Dates: start: 20091002
  16. ACETAMINOPHEN. [Concomitant]
     Active Substance: ACETAMINOPHEN
     Route: 048
     Dates: start: 20091002, end: 20091016

REACTIONS (15)
  - Bronchiectasis [Unknown]
  - Pseudomonas infection [Unknown]
  - Oxygen saturation decreased [Unknown]
  - Joint swelling [Unknown]
  - Heart rate increased [Unknown]
  - Hypotension [Unknown]
  - Drug ineffective [Unknown]
  - Heart rate increased [Unknown]
  - Blood pressure increased [Recovered/Resolved]
  - Dyspnoea [Unknown]
  - Blood pressure decreased [Unknown]
  - Chronic obstructive pulmonary disease [Unknown]
  - Weight decreased [Not Recovered/Not Resolved]
  - Blood pressure fluctuation [Unknown]
  - Blood pressure increased [Unknown]

NARRATIVE: CASE EVENT DATE: 20120813
